FAERS Safety Report 9162866 (Version 2)
Quarter: 2013Q2

REPORT INFORMATION
  Report Type: Spontaneous
  Country: GB (occurrence: None)
  Receive Date: 20130213
  Receipt Date: 20130620
  Transmission Date: 20140414
  Serious: Yes (Other)
  Sender: FDA-Public Use
  Company Number: GER/UKI/13/0027806

PATIENT
  Age: 30 Year
  Sex: Female

DRUGS (3)
  1. SERTRALINE [Suspect]
     Indication: DEPRESSION
     Route: 048
     Dates: start: 20130122, end: 20130122
  2. PARACETAMOL (PARACETAMOL) [Concomitant]
  3. THYROXINE (LEVOTHYROXINE SODIUM) [Concomitant]

REACTIONS (1)
  - Convulsion [None]
